FAERS Safety Report 7570764-7 (Version None)
Quarter: 2011Q2

REPORT INFORMATION
  Report Type: 
  Country: None (occurrence: None)
  Receive Date: 20110624
  Receipt Date: 20110613
  Transmission Date: 20111010
  Serious: Yes (Other)
  Sender: FDA-Public Use
  Company Number: US-ELI_LILLY_AND_COMPANY-US201106003817

PATIENT
  Sex: Female

DRUGS (1)
  1. ADCIRCA [Suspect]
     Dosage: UNK, UNKNOWN
     Dates: start: 20110608

REACTIONS (5)
  - ATRIAL FIBRILLATION [None]
  - HEART RATE INCREASED [None]
  - HEART RATE ABNORMAL [None]
  - ARRHYTHMIA [None]
  - PALPITATIONS [None]
